FAERS Safety Report 21612861 (Version 2)
Quarter: 2022Q4

REPORT INFORMATION
  Report Type: Other
  Country: US (occurrence: None)
  Receive Date: 20221118
  Receipt Date: 20221128
  Transmission Date: 20230112
  Serious: Yes (Other)
  Sender: FDA-Public Use
  Company Number: US-ROCHE-3217249

PATIENT
  Age: 66 Year
  Sex: Female

DRUGS (3)
  1. OCREVUS [Suspect]
     Active Substance: OCRELIZUMAB
     Indication: Multiple sclerosis
     Dosage: INFUSE 300 MG ON DAY 0 THEN 300 MG ON DAY 15, INFUSE 600 MG EVERY SIX MONTHS
     Route: 042
     Dates: start: 20200129
  2. TECFIDERA [Concomitant]
     Active Substance: DIMETHYL FUMARATE
  3. COPAXONE [Concomitant]
     Active Substance: GLATIRAMER ACETATE

REACTIONS (2)
  - COVID-19 pneumonia [Recovered/Resolved]
  - Asthenia [Not Recovered/Not Resolved]

NARRATIVE: CASE EVENT DATE: 20220903
